FAERS Safety Report 15111649 (Version 1)
Quarter: 2018Q3

REPORT INFORMATION
  Report Type: Spontaneous
  Country: IS (occurrence: IS)
  Receive Date: 20180705
  Receipt Date: 20180705
  Transmission Date: 20181010
  Serious: Yes (Death, Other)
  Sender: FDA-Public Use
  Company Number: IS-ALEMBIC PHARMACUETICALS LIMITED-2018SCAL000457

PATIENT

DRUGS (2)
  1. BUPROPION HYDROCHLORIDE. [Suspect]
     Active Substance: BUPROPION HYDROCHLORIDE
     Indication: SCHIZOPHRENIA
     Dosage: UNK
  2. AMPHETAMINE [Concomitant]
     Active Substance: AMPHETAMINE
     Indication: SCHIZOPHRENIA
     Dosage: UNK

REACTIONS (4)
  - Delirium [Fatal]
  - Asphyxia [Fatal]
  - Agitation [Unknown]
  - Toxicity to various agents [Unknown]
